FAERS Safety Report 18231618 (Version 3)
Quarter: 2020Q4

REPORT INFORMATION
  Report Type: Report from Study
  Country: None (occurrence: US)
  Receive Date: 20200904
  Receipt Date: 20201122
  Transmission Date: 20210113
  Serious: Yes (Other)
  Sender: FDA-Public Use
  Company Number: US-ABBVIE-20K-163-3548971-00

PATIENT
  Sex: Male

DRUGS (1)
  1. IMBRUVICA [Suspect]
     Active Substance: IBRUTINIB
     Indication: MANTLE CELL LYMPHOMA
     Route: 048
     Dates: start: 20190424, end: 20201103

REACTIONS (4)
  - Vein rupture [Unknown]
  - Pain [Unknown]
  - Haematochezia [Not Recovered/Not Resolved]
  - Osteogenesis imperfecta [Unknown]
